FAERS Safety Report 7210716-X (Version None)
Quarter: 2011Q1

REPORT INFORMATION
  Report Type: 
  Country: None (occurrence: None)
  Receive Date: 20110105
  Receipt Date: 20101221
  Transmission Date: 20110831
  Serious: No
  Sender: FDA-Public Use
  Company Number: US-PFIZER INC-2010169337

PATIENT
  Age: 73 Year
  Sex: Female
  Weight: 55.329 kg

DRUGS (8)
  1. TOVIAZ [Suspect]
     Dosage: UNK
  2. SANCTURA [Suspect]
  3. DETROL LA [Suspect]
     Dosage: 4 MG, 1X/DAY
     Route: 048
     Dates: start: 20080101
  4. VESICARE [Suspect]
     Dosage: UNK
  5. OXYTROL [Suspect]
     Dosage: PATCH
     Route: 062
     Dates: end: 20101220
  6. FOSAMAX [Concomitant]
     Indication: OSTEOPOROSIS
     Dosage: TABLET
     Route: 048
  7. DITROPAN [Suspect]
     Dosage: UNK
  8. LIPITOR [Concomitant]
     Indication: BLOOD CHOLESTEROL INCREASED
     Dosage: 10 MG, 1X/DAY
     Route: 048

REACTIONS (7)
  - GENERALISED ERYTHEMA [None]
  - MICTURITION URGENCY [None]
  - SLEEP DISORDER [None]
  - DRUG INEFFECTIVE [None]
  - DYSURIA [None]
  - PRURITUS [None]
  - DYSPEPSIA [None]
